FAERS Safety Report 5075094-3 (Version None)
Quarter: 2006Q3

REPORT INFORMATION
  Report Type: 
  Country: None (occurrence: None)
  Receive Date: 20060803
  Receipt Date: 20060803
  Transmission Date: 20061208
  Serious: No
  Sender: FDA-Public Use
  Company Number: None

PATIENT
  Age: 50 Year
  Sex: Female
  Weight: 47.6277 kg

DRUGS (1)
  1. BONIVA [Suspect]
     Indication: OSTEOPOROSIS
     Dosage: 1 PILL    ONCE-A-MONTH   PO
     Route: 048
     Dates: start: 20050906, end: 20060706

REACTIONS (14)
  - ARTHRALGIA [None]
  - BLOOD PRESSURE INCREASED [None]
  - CARTILAGE INJURY [None]
  - DIZZINESS [None]
  - DRY MOUTH [None]
  - EYE PAIN [None]
  - FACIAL PAIN [None]
  - FATIGUE [None]
  - FEELING HOT [None]
  - JOINT STIFFNESS [None]
  - MUSCULAR WEAKNESS [None]
  - MUSCULOSKELETAL STIFFNESS [None]
  - PAIN IN EXTREMITY [None]
  - PALPITATIONS [None]
